FAERS Safety Report 25318133 (Version 1)
Quarter: 2025Q2

REPORT INFORMATION
  Report Type: Spontaneous
  Country: US (occurrence: None)
  Receive Date: 20250514
  Receipt Date: 20250514
  Transmission Date: 20250717
  Serious: Yes (Hospitalization)
  Sender: FDA-CTU
  Company Number: None

PATIENT
  Sex: Female

DRUGS (11)
  1. MEKINIST [Suspect]
     Active Substance: TRAMETINIB DIMETHYL SULFOXIDE
     Indication: Malignant melanoma
     Dosage: FREQUENCY : DAILY;?
     Route: 048
  2. AD VAIR DISKU AER 250/50 [Concomitant]
  3. ALBUTEROL AER HFA [Concomitant]
  4. AMLODIPINE [Concomitant]
     Active Substance: AMLODIPINE BESYLATE
  5. ASPIRIN LOW TAB 81 MG EG [Concomitant]
  6. GELEXA TAB 40MG [Concomitant]
  7. CLOTRIM/BETA CREDI PROP [Concomitant]
  8. DEXCOM G7 MIS SENSOR [Concomitant]
  9. DIAZEPAM TAB 5MG [Concomitant]
  10. FENOFIBRATE TAB 160MG [Concomitant]
  11. FERROUS SULFATE [Concomitant]
     Active Substance: FERROUS SULFATE

REACTIONS (1)
  - Unevaluable event [None]
